FAERS Safety Report 6133864-4 (Version None)
Quarter: 2009Q1

REPORT INFORMATION
  Report Type: 
  Country: None (occurrence: None)
  Receive Date: 20090326
  Receipt Date: 20090313
  Transmission Date: 20090719
  Serious: Yes (Hospitalization)
  Sender: FDA-Public Use
  Company Number: SG-PFIZER INC-2009155736

PATIENT

DRUGS (10)
  1. BLINDED *PLACEBO [Suspect]
     Indication: COLORECTAL CANCER
     Dosage: 37.5 MG, 1X/DAY
     Route: 048
     Dates: start: 20080724
  2. BLINDED SUNITINIB MALATE [Suspect]
     Indication: COLORECTAL CANCER
     Dosage: 37.5 MG, 1X/DAY
     Route: 048
     Dates: start: 20080724
  3. IRINOTECAN HCL [Suspect]
     Indication: COLORECTAL CANCER
     Dosage: 232 MG, CYCLIC, EVERY 2 WEEKS
     Route: 042
     Dates: start: 20080724
  4. FLUOROURACIL [Suspect]
     Indication: COLORECTAL CANCER
     Dosage: 515 MG, CYCLIC, EVERY 2 WEEKS
     Route: 040
     Dates: start: 20080724
  5. FLUOROURACIL [Suspect]
     Dosage: 3091 MG, CYCLIC, EVERY 2 WEEKS
     Route: 041
     Dates: start: 20080724
  6. LEUCOVORIN CALCIUM [Suspect]
     Indication: COLORECTAL CANCER
     Dosage: 515 MG, CYCLIC, EVERY 2 WEEKS
     Dates: start: 20080724
  7. ATENOLOL [Concomitant]
     Dosage: 50 MG, 1X/DAY
     Dates: start: 20080717
  8. LACTULOSE [Concomitant]
     Dosage: 10 ML, 3X/DAY
     Dates: start: 20080806
  9. GLIBENCLAMIDE [Concomitant]
     Dosage: 5 MG, 1X/DAY
     Dates: start: 20000101
  10. NIFEDIPINE [Concomitant]
     Dosage: 30 MG, 1X/DAY
     Dates: start: 20080925

REACTIONS (4)
  - ESCHERICHIA INFECTION [None]
  - GASTRITIS [None]
  - INTESTINAL OBSTRUCTION [None]
  - PYREXIA [None]
